FAERS Safety Report 8232227-5 (Version None)
Quarter: 2012Q1

REPORT INFORMATION
  Report Type: 
  Country: None (occurrence: None)
  Receive Date: 20120323
  Receipt Date: 20120320
  Transmission Date: 20120608
  Serious: Yes (Death, Life-Threatening, Hospitalization)
  Sender: FDA-Public Use
  Company Number: US-EISAI INC-E7389-01653-CLI-US

PATIENT
  Sex: Male

DRUGS (27)
  1. METOCLOPRAMIDE [Concomitant]
     Route: 048
     Dates: start: 20110920
  2. NEUPOGEN [Concomitant]
     Route: 058
     Dates: start: 20111017
  3. DIPHENHYDRAMINE HCL [Concomitant]
     Indication: PREMEDICATION
     Route: 017
     Dates: start: 20110816, end: 20111011
  4. SENNA-MINT WAF [Concomitant]
     Indication: CONSTIPATION
     Route: 048
     Dates: start: 20110906
  5. ONDANSETRON [Concomitant]
     Indication: NAUSEA
     Route: 048
     Dates: start: 20110920
  6. FUROSEMIDE [Concomitant]
     Route: 048
     Dates: start: 20111004
  7. EPIRUBICIN HYDROCHLORIDE [Suspect]
     Indication: GALLBLADDER CANCER METASTATIC
     Route: 042
     Dates: start: 20110816
  8. XGEVA [Concomitant]
     Route: 058
     Dates: start: 20110816
  9. HYDROMORPHONE HCL [Concomitant]
     Indication: PAIN
     Route: 048
     Dates: start: 20110819, end: 20110906
  10. MANNITOL [Concomitant]
     Indication: PREMEDICATION
     Route: 017
     Dates: start: 20110816, end: 20111004
  11. MULTI-VITAMIN [Concomitant]
     Indication: SUPPLEMENTATION THERAPY
     Route: 048
     Dates: start: 20100329
  12. MAGIC MOUTHWASH [Concomitant]
     Route: 048
     Dates: start: 20110823
  13. OXYCODONE HCL [Concomitant]
     Route: 048
     Dates: start: 20110906
  14. FUROSEMIDE [Concomitant]
     Indication: HYPERTENSION
     Route: 042
     Dates: start: 20110816
  15. POTASSIUM CHLORIDE [Concomitant]
     Indication: PREMEDICATION
     Route: 017
     Dates: start: 20110816, end: 20111004
  16. OXYCODONE HCL [Concomitant]
     Indication: PAIN
     Route: 048
     Dates: start: 20110908
  17. PANTOPRAZOLE SODIUM [Concomitant]
     Route: 048
     Dates: start: 20110906, end: 20110927
  18. PALONOSETRON [Concomitant]
     Indication: PREMEDICATION
     Route: 017
     Dates: start: 20110816, end: 20111011
  19. LEVOFLOXACIN [Concomitant]
     Indication: NEUTROPENIA
     Route: 048
     Dates: start: 20110826, end: 20110927
  20. ZOLPIDEM TARTRATE [Concomitant]
     Indication: INSOMNIA
     Route: 048
     Dates: start: 20110830
  21. DEXAMETHASONE [Concomitant]
     Indication: PREMEDICATION
     Route: 017
     Dates: start: 20110816, end: 20111011
  22. SIMVASTATIN [Concomitant]
     Route: 048
     Dates: start: 20100329
  23. IBUPROFEN [Concomitant]
     Indication: PAIN
     Route: 048
     Dates: start: 20110823
  24. MAGNESIUM SULFATE [Concomitant]
     Indication: PREMEDICATION
     Route: 017
     Dates: start: 20110816, end: 20111004
  25. GEMCITABINE [Suspect]
     Indication: GALLBLADDER CANCER METASTATIC
     Route: 042
     Dates: start: 20110816
  26. SODIUM CHLORIDE [Concomitant]
     Indication: DEHYDRATION
     Route: 042
     Dates: start: 20110823, end: 20110823
  27. FOSAPREPITANT DIMEGLUMINE [Concomitant]
     Indication: PREMEDICATION
     Route: 017
     Dates: start: 20110816, end: 20111004

REACTIONS (3)
  - ABDOMINAL PAIN [None]
  - SEPSIS [None]
  - INTESTINAL PERFORATION [None]
